FAERS Safety Report 24811938 (Version 1)
Quarter: 2025Q1

REPORT INFORMATION
  Report Type: Spontaneous
  Country: US (occurrence: US)
  Receive Date: 20250106
  Receipt Date: 20250106
  Transmission Date: 20250408
  Serious: No
  Sender: BRAINTREE
  Company Number: US-BRAINTREE LABORATORIES, INC.-2024BTE00649

PATIENT
  Age: 55 Year
  Sex: Female
  Weight: 97.522 kg

DRUGS (6)
  1. SUTAB [Suspect]
     Active Substance: MAGNESIUM SULFATE\POTASSIUM CHLORIDE\SODIUM SULFATE
     Indication: Colonoscopy
     Route: 048
     Dates: start: 20240922, end: 202409
  2. DICLOFENAC [Concomitant]
     Active Substance: DICLOFENAC
  3. GABAPENTIN [Concomitant]
     Active Substance: GABAPENTIN
     Dosage: 30 MG, 2X/DAY
  4. CITALOPRAM [Concomitant]
     Active Substance: CITALOPRAM
  5. HYDROXYZINE [Concomitant]
     Active Substance: HYDROXYZINE HYDROCHLORIDE
     Dosage: 25 MG AT NIGHT
  6. OMEPRAZOLE MAGNESIUM [Concomitant]
     Active Substance: OMEPRAZOLE MAGNESIUM

REACTIONS (16)
  - Apnoea [Unknown]
  - Tremor [Not Recovered/Not Resolved]
  - Feeling of body temperature change [Unknown]
  - Feeling abnormal [Recovering/Resolving]
  - Confusional state [Unknown]
  - Headache [Unknown]
  - Blood pressure increased [Unknown]
  - Abnormal faeces [Not Recovered/Not Resolved]
  - Dehydration [Not Recovered/Not Resolved]
  - Hyperhidrosis [Unknown]
  - Thinking abnormal [Recovering/Resolving]
  - Retching [Unknown]
  - Dysgeusia [Unknown]
  - Abdominal pain upper [Unknown]
  - Nausea [Unknown]
  - Vomiting [Unknown]

NARRATIVE: CASE EVENT DATE: 20240901
